FAERS Safety Report 9380933 (Version 1)
Quarter: 2013Q3

REPORT INFORMATION
  Report Type: Spontaneous
  Country: US (occurrence: US)
  Receive Date: 20130703
  Receipt Date: 20130703
  Transmission Date: 20140515
  Serious: Yes (Hospitalization, Other)
  Sender: FDA-Public Use
  Company Number: US-AMGEN-USASP2013046110

PATIENT
  Age: 69 Year
  Sex: Female

DRUGS (1)
  1. ENBREL [Suspect]
     Indication: RHEUMATOID ARTHRITIS
     Dosage: 50 MG, UNK
     Route: 065
     Dates: start: 201205

REACTIONS (7)
  - Joint injury [Recovered/Resolved]
  - Arthralgia [Not Recovered/Not Resolved]
  - Gait disturbance [Recovered/Resolved]
  - Finger deformity [Not Recovered/Not Resolved]
  - Condition aggravated [Not Recovered/Not Resolved]
  - Muscular weakness [Not Recovered/Not Resolved]
  - Joint swelling [Not Recovered/Not Resolved]
